FAERS Safety Report 6794313-6 (Version None)
Quarter: 2010Q2

REPORT INFORMATION
  Report Type: 
  Country: None (occurrence: None)
  Receive Date: 20100625
  Receipt Date: 20100614
  Transmission Date: 20101027
  Serious: No
  Sender: FDA-Public Use
  Company Number: US-BIOGENIDEC-2010BI020594

PATIENT
  Age: 51 Year
  Sex: Female

DRUGS (1)
  1. TYSABRI [Suspect]
     Indication: MULTIPLE SCLEROSIS
     Route: 042
     Dates: start: 20080812

REACTIONS (6)
  - ABDOMINAL DISCOMFORT [None]
  - AMNESIA [None]
  - DISTURBANCE IN ATTENTION [None]
  - HEAD INJURY [None]
  - HEADACHE [None]
  - MENTAL IMPAIRMENT [None]
